FAERS Safety Report 25009271 (Version 5)
Quarter: 2025Q3

REPORT INFORMATION
  Report Type: Spontaneous
  Country: JP (occurrence: JP)
  Receive Date: 20250225
  Receipt Date: 20250929
  Transmission Date: 20251020
  Serious: Yes (Life-Threatening, Hospitalization, Other)
  Sender: MERCK SHARP & DOHME LLC
  Company Number: JP-009507513-2257938

PATIENT
  Age: 5 Decade
  Sex: Male

DRUGS (3)
  1. KEYTRUDA [Suspect]
     Active Substance: PEMBROLIZUMAB
     Indication: Lung adenocarcinoma stage III
     Route: 041
     Dates: start: 20241114, end: 20250205
  2. CISPLATIN [Suspect]
     Active Substance: CISPLATIN
     Indication: Lung adenocarcinoma stage III
     Route: 041
     Dates: start: 20241114, end: 20250205
  3. PEMETREXED [Suspect]
     Active Substance: PEMETREXED
     Indication: Lung adenocarcinoma stage III
     Route: 041
     Dates: start: 20241114, end: 20250205

REACTIONS (6)
  - Immune-mediated myelitis [Recovering/Resolving]
  - Meningitis [Recovered/Resolved]
  - Serum ferritin increased [Unknown]
  - Urinary retention [Unknown]
  - Muscular weakness [Recovered/Resolved]
  - Eastern Cooperative Oncology Group performance status worsened [Recovered/Resolved]

NARRATIVE: CASE EVENT DATE: 20250205
